FAERS Safety Report 21764967 (Version 1)
Quarter: 2022Q4

REPORT INFORMATION
  Report Type: Spontaneous
  Country: DE (occurrence: DE)
  Receive Date: 20221222
  Receipt Date: 20221222
  Transmission Date: 20230113
  Serious: Yes (Hospitalization, Other)
  Sender: FDA-Public Use
  Company Number: DE-BAYER-2022A171266

PATIENT
  Sex: Female

DRUGS (3)
  1. EYLEA [Suspect]
     Active Substance: AFLIBERCEPT
     Indication: Product used for unknown indication
     Dosage: UNK, Q4WK, SOLUTION FOR INJECTION, STRENGTH: 40 MG/ML
     Dates: end: 202204
  2. EYLEA [Suspect]
     Active Substance: AFLIBERCEPT
     Dosage: UNK, Q4WK, SOLUTION FOR INJECTION, STRENGTH: 40 MG/ML
     Dates: start: 202209
  3. EYLEA [Suspect]
     Active Substance: AFLIBERCEPT
     Dosage: UNK, ONCE, SOLUTION FOR INJECTION, STRENGTH: 40 MG/ML
     Dates: start: 20221205, end: 20221205

REACTIONS (6)
  - Ovarian cancer [Unknown]
  - Blepharitis [Unknown]
  - Eye inflammation [Unknown]
  - Injection site pain [Unknown]
  - Injection site erythema [Unknown]
  - Lacrimation increased [Unknown]
